FAERS Safety Report 7702779-X (Version None)
Quarter: 2011Q3

REPORT INFORMATION
  Report Type: 
  Country: None (occurrence: None)
  Receive Date: 20110823
  Receipt Date: 20110811
  Transmission Date: 20111222
  Serious: Yes (Hospitalization, Other)
  Sender: FDA-Public Use
  Company Number: US-BAYER-2011-015283

PATIENT
  Age: 35 Year
  Sex: Female
  Weight: 86.168 kg

DRUGS (13)
  1. ASCORBIC ACID [Concomitant]
  2. CIPROFLOXACIN [Concomitant]
  3. YAZ [Suspect]
     Indication: CONTRACEPTION
     Dosage: UNK
     Dates: start: 20070101, end: 20080201
  4. BACTRIM [Concomitant]
     Dosage: UNK
     Dates: start: 20070320
  5. YAZ [Suspect]
     Indication: PREMENSTRUAL SYNDROME
  6. ZITHROMAX [Concomitant]
  7. DIFLUCAN [Concomitant]
  8. CILOXAN [Concomitant]
  9. NABUMETONE [Concomitant]
  10. PHENAZOPYRIDINE HCL TAB [Concomitant]
  11. DYNABAC [Concomitant]
  12. AMOXICILLIN [Concomitant]
  13. PROCHLORPERAZINE [Concomitant]

REACTIONS (5)
  - ANXIETY [None]
  - EMOTIONAL DISTRESS [None]
  - GALLBLADDER INJURY [None]
  - PAIN [None]
  - CHOLELITHIASIS [None]
